FAERS Safety Report 20015922 (Version 1)
Quarter: 2021Q4

REPORT INFORMATION
  Report Type: Spontaneous
  Country: US (occurrence: None)
  Receive Date: 20211102
  Receipt Date: 20211102
  Transmission Date: 20220303
  Serious: Yes (Hospitalization)
  Sender: FDA-Public Use
  Company Number: None

PATIENT
  Age: 76 Year
  Sex: Female
  Weight: 103.95 kg

DRUGS (2)
  1. DEXTROSE [Suspect]
     Active Substance: DEXTROSE
     Indication: Impaired gastric emptying
     Dosage: FREQUENCY : DAILY;?
     Route: 042
     Dates: start: 20211026
  2. MAGNESIUM CHLORIDE [Concomitant]
     Active Substance: MAGNESIUM CHLORIDE

REACTIONS (9)
  - Hyperglycaemia [None]
  - Tachypnoea [None]
  - Atrial fibrillation [None]
  - Hypotension [None]
  - Laboratory test abnormal [None]
  - Urinary tract infection [None]
  - Disorientation [None]
  - Acidosis hyperchloraemic [None]
  - Acute kidney injury [None]

NARRATIVE: CASE EVENT DATE: 20211029
